FAERS Safety Report 6970858-0 (Version None)
Quarter: 2010Q3

REPORT INFORMATION
  Report Type: 
  Country: None (occurrence: None)
  Receive Date: 20100908
  Receipt Date: 20100906
  Transmission Date: 20110219
  Serious: Yes (Other)
  Sender: FDA-Public Use
  Company Number: B0664814A

PATIENT
  Sex: Female
  Weight: 45 kg

DRUGS (3)
  1. SERETIDE [Suspect]
     Indication: CHRONIC OBSTRUCTIVE PULMONARY DISEASE
     Dosage: 1PUFF TWICE PER DAY
     Route: 055
     Dates: start: 20070101
  2. SPIRIVA [Concomitant]
     Route: 055
  3. ALBUTEROL SULFATE AUTOHALER [Concomitant]

REACTIONS (5)
  - BLOOD BLISTER [None]
  - CONTUSION [None]
  - HAEMORRHAGE [None]
  - SKIN FRAGILITY [None]
  - SKIN LACERATION [None]
